FAERS Safety Report 6393813-0 (Version None)
Quarter: 2009Q4

REPORT INFORMATION
  Report Type: 
  Country: None (occurrence: None)
  Receive Date: 20091008
  Receipt Date: 20091005
  Transmission Date: 20100525
  Serious: Yes (Hospitalization)
  Sender: FDA-Public Use
  Company Number: IT-WYE-H09049409

PATIENT
  Sex: Female

DRUGS (11)
  1. CORDARONE [Suspect]
     Indication: ARRHYTHMIA PROPHYLAXIS
     Route: 048
     Dates: start: 20070512, end: 20090409
  2. ATENOLOL [Concomitant]
     Route: 065
     Dates: start: 20010403, end: 20090214
  3. ALPRAZOLAM [Concomitant]
     Route: 065
     Dates: start: 20010104, end: 20090214
  4. TRIAZOLAM [Concomitant]
     Route: 065
     Dates: start: 20010104, end: 20090214
  5. COLECALCIFEROL [Concomitant]
     Dosage: UNKNOWN
     Route: 030
     Dates: start: 20090203, end: 20090214
  6. LASIX [Concomitant]
     Dosage: UNKNOWN
     Route: 048
     Dates: start: 20080208, end: 20090214
  7. APROVEL [Concomitant]
     Dosage: UNKNOWN
     Route: 048
     Dates: start: 20070706, end: 20090214
  8. LIVIAL [Concomitant]
     Dosage: UNKNOWN
     Route: 048
     Dates: start: 20041121, end: 20090214
  9. MESALAZINE [Concomitant]
     Indication: DIVERTICULUM INTESTINAL
     Route: 048
     Dates: start: 20051121, end: 20090214
  10. NITROGLYCERIN [Concomitant]
     Dosage: UNSPECIFIED
     Route: 065
     Dates: start: 20090214, end: 20090214
  11. COUMADIN [Concomitant]
     Route: 048
     Dates: start: 20070521, end: 20090214

REACTIONS (2)
  - BRONCHOPNEUMONIA [None]
  - PULMONARY FIBROSIS [None]
